FAERS Safety Report 7268247-7 (Version None)
Quarter: 2011Q1

REPORT INFORMATION
  Report Type: 
  Country: None (occurrence: None)
  Receive Date: 20110201
  Receipt Date: 20110128
  Transmission Date: 20110831
  Serious: Yes (Death)
  Sender: FDA-Public Use
  Company Number: PHHY2011US05502

PATIENT
  Sex: Male

DRUGS (2)
  1. MYFORTIC [Suspect]
     Dosage: 360 MG, UNK
  2. NEORAL [Suspect]
     Dosage: 25 MG, UNK

REACTIONS (1)
  - MYOCARDIAL INFARCTION [None]
